FAERS Safety Report 4965927-0 (Version None)
Quarter: 2006Q2

REPORT INFORMATION
  Report Type: 
  Country: None (occurrence: None)
  Receive Date: 20060403
  Receipt Date: 20060320
  Transmission Date: 20061013
  Serious: Yes (Other)
  Sender: FDA-Public Use
  Company Number: 8015743

PATIENT
  Age: 67 Year
  Sex: Female

DRUGS (6)
  1. KEPPRA [Suspect]
     Indication: EPILEPSY
     Dosage: 500 MG/2/D PO
     Route: 048
     Dates: start: 20051101
  2. TEGRETOL [Suspect]
     Indication: EPILEPSY
     Dosage: 800 MG/2/D PO
     Route: 048
  3. TEGRETOL [Suspect]
     Indication: EPILEPSY
     Dosage: PO
     Route: 048
  4. AMITRIPTYLINE HCL [Concomitant]
  5. ATENOLOL [Concomitant]
  6. CO-CODAMOL [Concomitant]

REACTIONS (5)
  - DIPLOPIA [None]
  - DIZZINESS [None]
  - DRUG TOXICITY [None]
  - FEELING ABNORMAL [None]
  - HEADACHE [None]
